FAERS Safety Report 7663764-X (Version None)
Quarter: 2011Q3

REPORT INFORMATION
  Report Type: 
  Country: None (occurrence: None)
  Receive Date: 20110805
  Receipt Date: 20100803
  Transmission Date: 20111222
  Serious: No
  Sender: FDA-Public Use
  Company Number: US-ABBOTT-10P-163-0661192-00

PATIENT
  Sex: Female

DRUGS (3)
  1. SYNTHROID [Concomitant]
     Indication: PRODUCT USED FOR UNKNOWN INDICATION
  2. NIASPAN [Suspect]
     Indication: BLOOD TRIGLYCERIDES INCREASED
     Dosage: 500 MG DAILY AT BEDTIME
     Route: 048
     Dates: start: 20090629
  3. NIASPAN [Suspect]
     Dosage: 1000 MG DAILY AT BEDTIME
     Route: 048
     Dates: end: 20100718

REACTIONS (4)
  - ANXIETY [None]
  - HEART RATE INCREASED [None]
  - HYPERTENSION [None]
  - FLUSHING [None]
